FAERS Safety Report 5832079-4 (Version None)
Quarter: 2008Q3

REPORT INFORMATION
  Report Type: 
  Country: None (occurrence: None)
  Receive Date: 20080804
  Receipt Date: 20080724
  Transmission Date: 20090109
  Serious: Yes (Death, Other)
  Sender: FDA-Public Use
  Company Number: US-ROCHE-577333

PATIENT
  Age: 59 Year
  Sex: Female

DRUGS (17)
  1. ROCEPHIN [Suspect]
     Dosage: SECOND INDICATION: SHORTNESS OF BREATH. ROUTE: INTRAMUSCULAR
     Route: 065
     Dates: start: 20060921
  2. ROCEPHIN [Suspect]
     Dosage: INTRAVENOUS ROUTE
     Route: 065
     Dates: start: 20060401, end: 20060401
  3. ROCEPHIN [Suspect]
     Dosage: ROUTE: INTRAVENOUS
     Route: 065
     Dates: start: 20040701, end: 20040701
  4. ROCEPHIN [Suspect]
     Dosage: ROUTE: INTRAVENOUS
     Route: 065
     Dates: start: 20020101
  5. INSULIN [Concomitant]
     Dosage: REGULAR INSULIN AS WELL AS SLIDING SCALE.
  6. SYNTHROID [Concomitant]
  7. SINGULAIR [Concomitant]
  8. POTASSIUM CHLORIDE [Concomitant]
  9. NEURONTIN [Concomitant]
  10. DEPAKOTE [Concomitant]
  11. LIPITOR [Concomitant]
  12. PRILOSEC [Concomitant]
  13. MULTI-VITAMIN [Concomitant]
  14. LORTAB [Concomitant]
  15. TYLENOL [Concomitant]
  16. MILK OF MAGNESIA [Concomitant]
  17. IMODIUM [Concomitant]

REACTIONS (2)
  - ANAPHYLACTIC REACTION [None]
  - CONVULSION [None]
